FAERS Safety Report 9100594 (Version 3)
Quarter: 2013Q1

REPORT INFORMATION
  Report Type: Spontaneous
  Country: IT (occurrence: IT)
  Receive Date: 20130215
  Receipt Date: 20130315
  Transmission Date: 20140127
  Serious: Yes (Other)
  Sender: FDA-Public Use
  Company Number: IT-JNJFOC-20130204237

PATIENT
  Age: 27 Year
  Sex: Female

DRUGS (3)
  1. TOPAMAX [Suspect]
     Indication: PARTIAL SEIZURES
     Route: 048
     Dates: start: 20060110, end: 20121120
  2. TOPAMAX [Suspect]
     Indication: PARTIAL SEIZURES
     Route: 048
     Dates: start: 201211, end: 201302
  3. UNSPECIFED MEDICATIONS [Concomitant]
     Indication: AUTOIMMUNE DISORDER
     Route: 065

REACTIONS (1)
  - Granuloma [Recovered/Resolved]
